FAERS Safety Report 9623318 (Version 1)
Quarter: 2013Q4

REPORT INFORMATION
  Report Type: Spontaneous
  Country: US (occurrence: None)
  Receive Date: 20131010
  Receipt Date: 20131010
  Transmission Date: 20140711
  Serious: Yes (Hospitalization)
  Sender: FDA-Public Use
  Company Number: VAL_02753_2013

PATIENT
  Sex: Male
  Weight: 79.38 kg

DRUGS (10)
  1. LOPRESSOR (NOT SPECIFIED) [Suspect]
     Indication: BLOOD PRESSURE ABNORMAL
  2. HUMIRA [Suspect]
     Indication: PSORIATIC ARTHROPATHY
     Dosage: IN PRE-FILLED PEN
     Dates: start: 2011, end: 201303
  3. COZAAR [Suspect]
     Indication: BLOOD PRESSURE ABNORMAL
     Dates: end: 201308
  4. OXYCONTIN [Suspect]
     Indication: APPENDICITIS PERFORATED
     Dosage: DF
  5. METHOTREXATE [Concomitant]
  6. SYNTHROID [Concomitant]
  7. PRILOSEC [Concomitant]
  8. FOLIC ACID [Concomitant]
  9. CRESTOR [Concomitant]
  10. VITRON-C [Concomitant]

REACTIONS (13)
  - Appendicitis perforated [None]
  - Macrocytosis [None]
  - Arthralgia [None]
  - Psoriasis [None]
  - Confusional state [None]
  - Sepsis [None]
  - Abscess intestinal [None]
  - Hypotension [None]
  - Loss of consciousness [None]
  - Abdominal pain [None]
  - Pyrexia [None]
  - Vomiting [None]
  - Weight decreased [None]
